FAERS Safety Report 18047601 (Version 1)
Quarter: 2020Q3

REPORT INFORMATION
  Report Type: Spontaneous
  Country: US (occurrence: US)
  Receive Date: 20200721
  Receipt Date: 20200721
  Transmission Date: 20201103
  Serious: Yes (Hospitalization)
  Sender: FDA-Public Use
  Company Number: US-SA-2020SA186109

PATIENT

DRUGS (3)
  1. PLAVIX [Suspect]
     Active Substance: CLOPIDOGREL BISULFATE
     Dosage: UNK
     Route: 065
  2. TEQUIN [Suspect]
     Active Substance: GATIFLOXACIN
     Dosage: UNK
  3. TOVIAZ [Concomitant]
     Active Substance: FESOTERODINE FUMARATE
     Indication: BLADDER DISORDER
     Dosage: 8 MG, QD

REACTIONS (9)
  - Facial bones fracture [Not Recovered/Not Resolved]
  - Musculoskeletal disorder [Recovering/Resolving]
  - Sinus disorder [Not Recovered/Not Resolved]
  - Hypersensitivity [Unknown]
  - Illness [Not Recovered/Not Resolved]
  - Hypoacusis [Not Recovered/Not Resolved]
  - Coronary arterial stent insertion [Recovering/Resolving]
  - Muscular weakness [Not Recovered/Not Resolved]
  - Gait disturbance [Not Recovered/Not Resolved]
